FAERS Safety Report 5012519-3 (Version None)
Quarter: 2006Q2

REPORT INFORMATION
  Report Type: 
  Country: None (occurrence: None)
  Receive Date: 20060411
  Receipt Date: 20060208
  Transmission Date: 20061013
  Serious: No
  Sender: FDA-Public Use
  Company Number: 2006S1000034

PATIENT
  Age: 52 Year
  Sex: Male

DRUGS (4)
  1. CUBICIN [Suspect]
     Indication: DEVICE RELATED INFECTION
     Dosage: 465MG, Q24H; IV
     Route: 042
  2. VANCOMYCIN [Concomitant]
  3. HEPARIN [Concomitant]
  4. NORMAL SALINE [Concomitant]

REACTIONS (10)
  - BODY TEMPERATURE DECREASED [None]
  - CHEST DISCOMFORT [None]
  - CHEST PAIN [None]
  - COUGH [None]
  - DIZZINESS [None]
  - DYSPNOEA [None]
  - HYPERSENSITIVITY [None]
  - PALLOR [None]
  - PRURITUS [None]
  - URTICARIA [None]
